FAERS Safety Report 11580734 (Version 12)
Quarter: 2017Q2

REPORT INFORMATION
  Report Type: Spontaneous
  Country: CA (occurrence: CA)
  Receive Date: 20150930
  Receipt Date: 20170405
  Transmission Date: 20170829
  Serious: Yes (Other)
  Sender: FDA-Public Use
  Company Number: CA-ROCHE-1640015

PATIENT
  Age: 27 Year
  Sex: Female

DRUGS (8)
  1. XOLAIR [Suspect]
     Active Substance: OMALIZUMAB
     Route: 058
     Dates: start: 20160629
  2. XOLAIR [Suspect]
     Active Substance: OMALIZUMAB
     Route: 058
     Dates: start: 20170111
  3. XOLAIR [Suspect]
     Active Substance: OMALIZUMAB
     Indication: ASTHMA
     Route: 058
     Dates: start: 20150323
  4. XOLAIR [Suspect]
     Active Substance: OMALIZUMAB
     Route: 058
     Dates: start: 20160309
  5. XOLAIR [Suspect]
     Active Substance: OMALIZUMAB
     Route: 058
     Dates: start: 20170322
  6. XOLAIR [Suspect]
     Active Substance: OMALIZUMAB
     Route: 058
     Dates: start: 20150703
  7. XOLAIR [Suspect]
     Active Substance: OMALIZUMAB
     Route: 058
     Dates: start: 20150729
  8. XOLAIR [Suspect]
     Active Substance: OMALIZUMAB
     Route: 058
     Dates: start: 20160323

REACTIONS (17)
  - Fatigue [Unknown]
  - Hepatic enzyme increased [Unknown]
  - Urticaria [Recovering/Resolving]
  - Blood glucose increased [Unknown]
  - Glucose tolerance impaired [Unknown]
  - Decreased appetite [Unknown]
  - Productive cough [Unknown]
  - Ecchymosis [Unknown]
  - Musculoskeletal pain [Unknown]
  - Gastroenteritis [Recovering/Resolving]
  - Nausea [Unknown]
  - Influenza [Unknown]
  - Heart rate increased [Unknown]
  - Viral upper respiratory tract infection [Unknown]
  - Road traffic accident [Unknown]
  - Asthma [Unknown]
  - Neck pain [Unknown]

NARRATIVE: CASE EVENT DATE: 20150703
